FAERS Safety Report 8767753 (Version 1)
Quarter: 2012Q4

REPORT INFORMATION
  Report Type: 
  Country: US (occurrence: US)
  Receive Date: 20120904
  Receipt Date: 20120904
  Transmission Date: 20130627
  Serious: No
  Sender: FDA-Public Use
  Company Number: US-AMGEN-USASP2012053673

PATIENT
  Age: 80 Year
  Sex: Female

DRUGS (1)
  1. ENBREL [Suspect]
     Indication: PSORIASIS
     Dosage: UNK

REACTIONS (4)
  - Arthropathy [Unknown]
  - Asthenia [Unknown]
  - Muscular weakness [Unknown]
  - Psoriasis [Unknown]
